FAERS Safety Report 6263749-4 (Version None)
Quarter: 2009Q3

REPORT INFORMATION
  Report Type: 
  Country: None (occurrence: None)
  Receive Date: 20090710
  Receipt Date: 20090701
  Transmission Date: 20100115
  Serious: Yes (Other)
  Sender: FDA-Public Use
  Company Number: PHHY2009JP26916

PATIENT
  Age: 76 Year
  Sex: Female

DRUGS (5)
  1. ZOMETA [Suspect]
     Indication: METASTASES TO BONE
     Dosage: UNK
     Dates: start: 20070601, end: 20080201
  2. CYCLOPHOSPHAMIDE [Concomitant]
     Dosage: UNK
     Dates: start: 20070601, end: 20071101
  3. EPIRUBICIN [Concomitant]
     Dosage: UNK
     Dates: start: 20070601, end: 20071101
  4. FLUOROURACIL [Concomitant]
     Dosage: UNK
     Dates: start: 20070601, end: 20071101
  5. ARIMIDEX [Concomitant]

REACTIONS (5)
  - CONCOMITANT DISEASE AGGRAVATED [None]
  - NEOPLASM MALIGNANT [None]
  - OSTEONECROSIS [None]
  - RENAL IMPAIRMENT [None]
  - TOOTH EXTRACTION [None]
